FAERS Safety Report 7579724-3 (Version None)
Quarter: 2011Q2

REPORT INFORMATION
  Report Type: 
  Country: None (occurrence: None)
  Receive Date: 20110629
  Receipt Date: 20110621
  Transmission Date: 20111010
  Serious: Yes (Hospitalization, Other)
  Sender: FDA-Public Use
  Company Number: US-ASTELLAS-2011US003255

PATIENT

DRUGS (1)
  1. PROGRAF [Suspect]
     Indication: LIVER TRANSPLANT
     Dosage: UNK
     Route: 065

REACTIONS (5)
  - PERITONEAL HAEMORRHAGE [None]
  - RENAL FAILURE [None]
  - LOCALISED INTRAABDOMINAL FLUID COLLECTION [None]
  - DYSPNOEA [None]
  - HYPERTENSION [None]
